FAERS Safety Report 8440261-5 (Version None)
Quarter: 2012Q2

REPORT INFORMATION
  Report Type: 
  Country: None (occurrence: None)
  Receive Date: 20120615
  Receipt Date: 20120608
  Transmission Date: 20120825
  Serious: Yes (Hospitalization, Other)
  Sender: FDA-Public Use
  Company Number: US-PFIZER INC-2010139485

PATIENT
  Sex: Female

DRUGS (3)
  1. DILANTIN-125 [Suspect]
     Indication: CONVULSION
     Dosage: UNK
     Dates: start: 20020401, end: 20020501
  2. DILANTIN-125 [Suspect]
     Dosage: 300 MG, AT EVERY BED TIME
     Dates: start: 20020419
  3. DILANTIN-125 [Suspect]
     Dosage: 100 MG, 3X/DAY
     Route: 048
     Dates: start: 20020418

REACTIONS (1)
  - STEVENS-JOHNSON SYNDROME [None]
